FAERS Safety Report 5013261-5 (Version None)
Quarter: 2006Q2

REPORT INFORMATION
  Report Type: 
  Country: None (occurrence: None)
  Receive Date: 20060530
  Receipt Date: 20060403
  Transmission Date: 20061013
  Serious: Yes (Other)
  Sender: FDA-Public Use
  Company Number: US-GLAXOSMITHKLINE-A0600077A

PATIENT
  Age: 75 Year
  Sex: Female

DRUGS (7)
  1. WELLBUTRIN XL [Suspect]
     Route: 048
     Dates: start: 20060307, end: 20060318
  2. BROMOCRIPTINE MESYLATE [Concomitant]
  3. UNKNOWN MEDICATION [Concomitant]
  4. MICARDIS HCT [Concomitant]
  5. CALCIUM D [Concomitant]
  6. PREDNISONE [Concomitant]
  7. ASPIRIN [Concomitant]

REACTIONS (2)
  - HALLUCINATION [None]
  - WEIGHT DECREASED [None]
